FAERS Safety Report 10935674 (Version 2)
Quarter: 2015Q2

REPORT INFORMATION
  Report Type: Spontaneous
  Country: US (occurrence: US)
  Receive Date: 20150320
  Receipt Date: 20150519
  Transmission Date: 20150821
  Serious: No
  Sender: FDA-Public Use
  Company Number: US-PFIZER INC-2015099834

PATIENT
  Age: 43 Year
  Sex: Female
  Weight: 68 kg

DRUGS (1)
  1. EFFEXOR XR [Suspect]
     Active Substance: VENLAFAXINE HYDROCHLORIDE
     Indication: MENTAL DISORDER
     Dosage: 450 MG, DAILY (150 MG/3 CAPSULES DAILY)

REACTIONS (5)
  - Drug withdrawal syndrome [Unknown]
  - Disorientation [Unknown]
  - Paraesthesia [Unknown]
  - Dizziness [Unknown]
  - Overdose [Unknown]
